FAERS Safety Report 9850044 (Version 1)
Quarter: 2014Q1

REPORT INFORMATION
  Report Type: Spontaneous
  Country: US (occurrence: None)
  Receive Date: 20140124
  Receipt Date: 20140124
  Transmission Date: 20141002
  Serious: Yes (Disabling)
  Sender: FDA-Public Use
  Company Number: None

PATIENT
  Age: 49 Year
  Sex: Male
  Weight: 99.79 kg

DRUGS (2)
  1. ARTHROTEC [Suspect]
     Indication: JOINT SWELLING
     Dosage: 1 PILL
     Route: 048
     Dates: start: 201111, end: 201111
  2. ARTHROTEC [Suspect]
     Indication: JOINT SWELLING
     Dosage: 1 PILL
     Route: 048
     Dates: start: 201111, end: 201111

REACTIONS (5)
  - Arthralgia [None]
  - Arthralgia [None]
  - Arthralgia [None]
  - Musculoskeletal pain [None]
  - Neck pain [None]
